FAERS Safety Report 17722516 (Version 2)
Quarter: 2020Q2

REPORT INFORMATION
  Report Type: Spontaneous
  Country: US (occurrence: US)
  Receive Date: 20200429
  Receipt Date: 20200507
  Transmission Date: 20200714
  Serious: No
  Sender: FDA-Public Use
  Company Number: US-PFIZER INC-2020172750

PATIENT
  Age: 58 Year
  Sex: Female

DRUGS (2)
  1. IBRANCE [Suspect]
     Active Substance: PALBOCICLIB
     Dosage: 100 MG
     Dates: start: 20191222
  2. IBRANCE [Suspect]
     Active Substance: PALBOCICLIB
     Dosage: 100 MG
     Dates: start: 20200401

REACTIONS (8)
  - White blood cell count decreased [Unknown]
  - Diarrhoea [Unknown]
  - Nausea [Unknown]
  - Tinnitus [Unknown]
  - Ear infection [Unknown]
  - Alopecia [Unknown]
  - Weight increased [Unknown]
  - Oropharyngeal pain [Unknown]
